FAERS Safety Report 8563551-4 (Version None)
Quarter: 2012Q3

REPORT INFORMATION
  Report Type: 
  Country: None (occurrence: None)
  Receive Date: 20120803
  Receipt Date: 20120731
  Transmission Date: 20120928
  Serious: Yes (Other)
  Sender: FDA-Public Use
  Company Number: NL-AMGEN-NLDSP2012038636

PATIENT
  Age: 69 Year
  Sex: Male

DRUGS (10)
  1. VITAMIN D [Concomitant]
     Dosage: 400 UNK, UNK
  2. DICLOFENAC SODIUM [Concomitant]
     Dosage: 50 DF, TID
  3. DIPYRIDAMOL [Concomitant]
     Dosage: 200 DF, BID
  4. GAVISCON [Concomitant]
     Dosage: 100 DF, BID
  5. PANTOPRAZOLE [Concomitant]
     Dosage: 40 UNK, UNK
  6. CALCIUM [Concomitant]
     Dosage: 1000 UNK, UNK
  7. TEMAZEPAM [Concomitant]
     Dosage: 10 DF, UNK
  8. MORPHINE [Concomitant]
  9. XGEVA [Suspect]
     Indication: METASTASES TO BONE
     Dosage: 120 MG, Q4WK
     Route: 058
     Dates: start: 20120308, end: 20120402
  10. ACETAMINOPHEN [Concomitant]

REACTIONS (1)
  - CEREBROVASCULAR ACCIDENT [None]
